FAERS Safety Report 9002523 (Version 1)
Quarter: 2013Q1

REPORT INFORMATION
  Report Type: Spontaneous
  Country: BR (occurrence: BR)
  Receive Date: 20130107
  Receipt Date: 20130107
  Transmission Date: 20140127
  Serious: Yes (Other)
  Sender: FDA-Public Use
  Company Number: BR-JNJFOC-20121214193

PATIENT
  Age: 37 Year
  Sex: Female
  Weight: 64 kg

DRUGS (6)
  1. REMICADE [Suspect]
     Indication: ANKYLOSING SPONDYLITIS
     Route: 042
     Dates: start: 20121016
  2. REMICADE [Suspect]
     Indication: ANKYLOSING SPONDYLITIS
     Route: 042
     Dates: start: 20121213
  3. METRONIDAZOLE [Concomitant]
     Route: 048
  4. OMEPRAZOLE [Concomitant]
     Route: 048
  5. AZATHIOPRINE [Concomitant]
     Indication: CROHN^S DISEASE
     Route: 048
  6. MESALAZINE [Concomitant]
     Indication: CROHN^S DISEASE
     Route: 054

REACTIONS (5)
  - Palpitations [Recovered/Resolved]
  - Infusion related reaction [Recovered/Resolved]
  - Burning sensation [Recovered/Resolved]
  - Hyperaemia [Recovered/Resolved]
  - Vital functions abnormal [Recovered/Resolved]
